FAERS Safety Report 17691342 (Version 1)
Quarter: 2020Q2

REPORT INFORMATION
  Report Type: Report from Study
  Country: None (occurrence: US)
  Receive Date: 20200422
  Receipt Date: 20200422
  Transmission Date: 20200714
  Serious: Yes (Other)
  Sender: FDA-Public Use
  Company Number: US-ABBVIE-19K-163-3193615-00

PATIENT
  Age: 73 Year
  Sex: Female
  Weight: 80.81 kg

DRUGS (2)
  1. HUMIRA [Suspect]
     Active Substance: ADALIMUMAB
     Route: 058
     Dates: start: 2019
  2. HUMIRA [Suspect]
     Active Substance: ADALIMUMAB
     Indication: RHEUMATOID ARTHRITIS
     Route: 058
     Dates: end: 201911

REACTIONS (9)
  - Osteoarthritis [Recovered/Resolved]
  - Vitamin D decreased [Recovering/Resolving]
  - Gout [Not Recovered/Not Resolved]
  - Muscle spasms [Unknown]
  - Joint swelling [Unknown]
  - Blood potassium decreased [Recovering/Resolving]
  - Peripheral swelling [Unknown]
  - Escherichia infection [Unknown]
  - Pain in extremity [Not Recovered/Not Resolved]

NARRATIVE: CASE EVENT DATE: 2019
